FAERS Safety Report 10255854 (Version 2)
Quarter: 2014Q3

REPORT INFORMATION
  Report Type: Spontaneous
  Country: IT (occurrence: IT)
  Receive Date: 20140624
  Receipt Date: 20140808
  Transmission Date: 20150326
  Serious: Yes (Hospitalization)
  Sender: FDA-Public Use
  Company Number: IT-WATSON-2014-13220

PATIENT
  Age: 83 Year
  Sex: Male

DRUGS (11)
  1. SILODYX [Concomitant]
     Active Substance: SILODOSIN
     Indication: PRODUCT USED FOR UNKNOWN INDICATION
     Dosage: 1 POSOLOGICAL UNIT, UNK
     Route: 048
  2. LEVOFLOXACIN (UNKNOWN) [Suspect]
     Active Substance: LEVOFLOXACIN
     Indication: BRONCHITIS
     Dosage: 500 MG, DAILY
     Route: 048
  3. TICLOPIDINA [Suspect]
     Active Substance: TICLOPIDINE
     Indication: PRODUCT USED FOR UNKNOWN INDICATION
     Dosage: 1 TABLET AT LUNCH AND 1 TABLET AT DINNER
     Route: 065
     Dates: start: 20131125, end: 20131215
  4. AVODART [Concomitant]
     Active Substance: DUTASTERIDE
     Indication: PRODUCT USED FOR UNKNOWN INDICATION
     Dosage: UNK
     Route: 048
  5. KOLIBRI [Suspect]
     Active Substance: ACETAMINOPHEN\TRAMADOL HYDROCHLORIDE
     Indication: PRODUCT USED FOR UNKNOWN INDICATION
     Dosage: 1 DF, DAILY
     Route: 048
     Dates: start: 201309
  6. CONGESCOR [Concomitant]
     Active Substance: BISOPROLOL
     Indication: PRODUCT USED FOR UNKNOWN INDICATION
     Dosage: 1 POSOLOGIC UNIT, UNK
     Route: 048
  7. PROVISACOR [Concomitant]
     Active Substance: ROSUVASTATIN
     Indication: PRODUCT USED FOR UNKNOWN INDICATION
     Dosage: 1 POSOLOGIC UNIT, UNK
     Route: 048
  8. VASORETIC [Concomitant]
     Active Substance: ENALAPRIL MALEATE\HYDROCHLOROTHIAZIDE
     Indication: PRODUCT USED FOR UNKNOWN INDICATION
     Dosage: 1 POSOLOGIC UNIT, UNK
     Route: 048
  9. ADALAT CRONO [Concomitant]
     Active Substance: NIFEDIPINE
     Indication: PRODUCT USED FOR UNKNOWN INDICATION
     Dosage: 1 POSOLOGICAL UNIT, UNK
     Route: 048
  10. ZYLORIC [Concomitant]
     Active Substance: ALLOPURINOL
     Indication: PRODUCT USED FOR UNKNOWN INDICATION
     Dosage: 1 POSOLOGICAL UNIT, UNK
     Route: 048
  11. LANSOX [Concomitant]
     Active Substance: LANSOPRAZOLE
     Indication: PRODUCT USED FOR UNKNOWN INDICATION
     Dosage: 30 MG, UNK
     Route: 048

REACTIONS (4)
  - Dermatitis exfoliative [Recovering/Resolving]
  - Gait disturbance [Unknown]
  - Pruritus generalised [Recovering/Resolving]
  - Tendon pain [Unknown]

NARRATIVE: CASE EVENT DATE: 20131230
